FAERS Safety Report 5379220-8 (Version None)
Quarter: 2007Q3

REPORT INFORMATION
  Report Type: 
  Country: None (occurrence: None)
  Receive Date: 20070705
  Receipt Date: 20070626
  Transmission Date: 20080115
  Serious: Yes (Hospitalization, Other)
  Sender: FDA-Public Use
  Company Number: HQWYE219015MAY07

PATIENT
  Sex: Male
  Weight: 97.16 kg

DRUGS (2)
  1. TIGECYCLINE [Suspect]
     Indication: ABDOMINAL INFECTION
     Dosage: 100 MG LOADING DOSE; THEN 50 MG EVERY 12 HOURS
     Route: 042
     Dates: start: 20070501, end: 20070510
  2. ERTAPENEM [Concomitant]
     Route: 042
     Dates: start: 20070430, end: 20070430

REACTIONS (2)
  - ABDOMINAL ABSCESS [None]
  - THROMBOCYTHAEMIA [None]
